FAERS Safety Report 8983017 (Version 1)
Quarter: 2012Q4

REPORT INFORMATION
  Report Type: 
  Country: GB (occurrence: GB)
  Receive Date: 20121221
  Receipt Date: 20121221
  Transmission Date: 20130627
  Serious: Yes (Hospitalization, Other)
  Sender: FDA-Public Use
  Company Number: GB-B.I. PHARMACEUTICALS,INC./RIDGEFIELD-2012-UK-01865UK

PATIENT
  Sex: Male

DRUGS (4)
  1. PRADAXA [Suspect]
     Indication: CEREBROVASCULAR ACCIDENT PROPHYLAXIS
  2. AMLODIPINE [Concomitant]
     Dosage: 5 mg
  3. ATRORVASTATIN [Concomitant]
     Dosage: 10 mg
  4. LANSOPRAZOLE [Concomitant]
     Dosage: 30 NR

REACTIONS (5)
  - Post procedural haemorrhage [Recovered/Resolved]
  - Anaemia [Not Recovered/Not Resolved]
  - Joint swelling [Not Recovered/Not Resolved]
  - Pain [Not Recovered/Not Resolved]
  - Malaise [Unknown]
